FAERS Safety Report 7371925-2 (Version None)
Quarter: 2011Q1

REPORT INFORMATION
  Report Type: 
  Country: None (occurrence: None)
  Receive Date: 20110225
  Receipt Date: 20101207
  Transmission Date: 20110831
  Serious: No
  Sender: FDA-Public Use
  Company Number: 319695

PATIENT
  Age: 54 Year
  Sex: Male

DRUGS (2)
  1. VICTOZA [Suspect]
     Indication: METABOLIC SYNDROME
     Dosage: MG, QD, SUBCUTANEOUS, 1.8 MG, QD, SUBCUTANEOUS
     Route: 058
     Dates: start: 20101116
  2. VICTOZA [Suspect]
     Indication: METABOLIC SYNDROME
     Dosage: MG, QD, SUBCUTANEOUS, 1.8 MG, QD, SUBCUTANEOUS
     Route: 058
     Dates: start: 20101001

REACTIONS (4)
  - WEIGHT DECREASED [None]
  - MUSCULOSKELETAL DISCOMFORT [None]
  - HEADACHE [None]
  - OCULAR DISCOMFORT [None]
